FAERS Safety Report 14063594 (Version 5)
Quarter: 2017Q4

REPORT INFORMATION
  Report Type: Report from Study
  Country: CA (occurrence: CA)
  Receive Date: 20171009
  Receipt Date: 20171226
  Transmission Date: 20180321
  Serious: Yes (Hospitalization, Other)
  Sender: FDA-Public Use
  Company Number: CA-GLAXOSMITHKLINE-CA2017GSK154870

PATIENT
  Sex: Female

DRUGS (1)
  1. SALBUTAMOL SULPHATE [Suspect]
     Active Substance: ALBUTEROL SULFATE
     Indication: PRODUCT USED FOR UNKNOWN INDICATION
     Dosage: UNK UNK, PRN

REACTIONS (15)
  - Pulmonary pain [Unknown]
  - Bronchospasm [Recovering/Resolving]
  - Memory impairment [Unknown]
  - Pneumonia [Unknown]
  - Blood cholesterol increased [Unknown]
  - Cough [Recovering/Resolving]
  - Arrhythmia [Not Recovered/Not Resolved]
  - Gastrooesophageal reflux disease [Unknown]
  - Pain [Unknown]
  - Fatigue [Unknown]
  - Oral pain [Unknown]
  - Pneumonia pneumococcal [Unknown]
  - Osteoporosis [Unknown]
  - Infarction [Unknown]
  - Hypertension [Unknown]

NARRATIVE: CASE EVENT DATE: 2014
